FAERS Safety Report 7285371-3 (Version None)
Quarter: 2011Q1

REPORT INFORMATION
  Report Type: 
  Country: None (occurrence: None)
  Receive Date: 20110210
  Receipt Date: 20110131
  Transmission Date: 20110831
  Serious: Yes (Other)
  Sender: FDA-Public Use
  Company Number: US-ROCHE-757946

PATIENT
  Sex: Male

DRUGS (7)
  1. ACCUPRIL [Concomitant]
     Indication: BLOOD PRESSURE ABNORMAL
  2. NEORAL [Concomitant]
     Indication: IMMUNOSUPPRESSANT DRUG THERAPY
  3. CELLCEPT [Suspect]
     Route: 065
  4. PROCRIT [Suspect]
     Indication: ANAEMIA
     Route: 058
     Dates: start: 20090601
  5. PROCRIT [Suspect]
     Route: 058
     Dates: start: 20100201
  6. PROCRIT [Suspect]
     Route: 058
     Dates: start: 20101001, end: 20101201
  7. FLAGYL [Concomitant]

REACTIONS (1)
  - THERAPEUTIC RESPONSE DECREASED [None]
